FAERS Safety Report 4571030-4 (Version None)
Quarter: 2005Q1

REPORT INFORMATION
  Report Type: 
  Country: None (occurrence: None)
  Receive Date: 20050118
  Receipt Date: 20040831
  Transmission Date: 20050727
  Serious: Yes (Hospitalization)
  Sender: FDA-Public Use
  Company Number: HQWYE752501SEP04

PATIENT
  Age: 59 Year
  Sex: Female
  Weight: 70.37 kg

DRUGS (1)
  1. PREMPRO [Suspect]
     Indication: HORMONE REPLACEMENT THERAPY
     Dosage: ONE TABLET DAILY; ORAL
     Route: 048
     Dates: start: 19910101, end: 20010101

REACTIONS (1)
  - BREAST CANCER [None]
